FAERS Safety Report 14007193 (Version 1)
Quarter: 2017Q3

REPORT INFORMATION
  Report Type: Spontaneous
  Country: US (occurrence: US)
  Receive Date: 20170923
  Receipt Date: 20170923
  Transmission Date: 20171128
  Serious: Yes (Disabling)
  Sender: FDA-Public Use
  Company Number: None

PATIENT
  Age: 56 Year
  Sex: Female
  Weight: 123.3 kg

DRUGS (1)
  1. LEVAQUIN [Suspect]
     Active Substance: LEVOFLOXACIN
     Indication: URINARY TRACT INFECTION
     Dates: start: 20170203, end: 20170205

REACTIONS (9)
  - Myalgia [None]
  - Hypoaesthesia [None]
  - Headache [None]
  - Paraesthesia [None]
  - Tendon pain [None]
  - Neck pain [None]
  - Pain in extremity [None]
  - Back pain [None]
  - Visual impairment [None]

NARRATIVE: CASE EVENT DATE: 20170203
